FAERS Safety Report 4567122-6 (Version None)
Quarter: 2005Q1

REPORT INFORMATION
  Report Type: 
  Country: None (occurrence: None)
  Receive Date: 20050127
  Receipt Date: 20050119
  Transmission Date: 20050727
  Serious: Yes (Life-Threatening, Other)
  Sender: FDA-Public Use
  Company Number: S04-USA-05512-01

PATIENT
  Age: 29 Year
  Sex: Female
  Weight: 107.9561 kg

DRUGS (7)
  1. CELEXA [Suspect]
     Indication: DEPRESSION
     Dosage: 40 MG QHS PO
     Route: 048
  2. GABITRIL [Suspect]
     Indication: BIPOLAR DISORDER
     Dosage: 4 MG BID
     Dates: start: 20040125, end: 20040209
  3. NEURONTIN [Suspect]
     Indication: BIPOLAR DISORDER
     Dosage: 1800 MG QD
     Dates: start: 20011030
  4. XANAX [Concomitant]
     Indication: ANXIETY
     Dosage: 0.5 MG PRN
     Dates: start: 20030908
  5. KLONOPIN [Suspect]
     Indication: ANXIETY
     Dosage: 0.5 MG BID
  6. LAMICTAL [Suspect]
     Indication: BIPOLAR DISORDER
     Dosage: 100 MG QAM
     Dates: start: 20040106
  7. LAMICTAL [Suspect]
     Indication: BIPOLAR DISORDER
     Dosage: 50 MG QHS
     Route: 048
     Dates: start: 20040106

REACTIONS (8)
  - APHASIA [None]
  - DIZZINESS [None]
  - DRUG INTERACTION [None]
  - DYSTONIA [None]
  - HALLUCINATION, AUDITORY [None]
  - HYPOGLYCAEMIA [None]
  - OEDEMA PERIPHERAL [None]
  - VISION BLURRED [None]
